FAERS Safety Report 5621887-0 (Version None)
Quarter: 2008Q1

REPORT INFORMATION
  Report Type: 
  Country: None (occurrence: None)
  Receive Date: 20080211
  Receipt Date: 20071210
  Transmission Date: 20080703
  Serious: Yes (Hospitalization)
  Sender: FDA-Public Use
  Company Number: US-BRISTOL-MYERS SQUIBB COMPANY-14008940

PATIENT
  Age: 51 Year
  Sex: Female

DRUGS (4)
  1. IXEMPRA [Suspect]
     Indication: BREAST CANCER
     Dates: start: 20071205
  2. BENADRYL [Concomitant]
  3. RANITIDINE [Concomitant]
  4. ZOFRAN [Concomitant]

REACTIONS (3)
  - DIARRHOEA [None]
  - NAUSEA [None]
  - VOMITING [None]
